FAERS Safety Report 9758311 (Version 1)
Quarter: 2013Q4

REPORT INFORMATION
  Report Type: Spontaneous
  Country: US (occurrence: JP)
  Receive Date: 20131216
  Receipt Date: 20131216
  Transmission Date: 20140711
  Serious: Yes (Life-Threatening, Other)
  Sender: FDA-Public Use
  Company Number: 2012SP001159

PATIENT
  Age: 70 Year
  Sex: 0
  Weight: 60 kg

DRUGS (1)
  1. FOSPHENYTOIN SODIUM [Suspect]
     Indication: STATUS EPILEPTICUS
     Route: 042
     Dates: start: 20120806, end: 20120806

REACTIONS (3)
  - Blood pressure decreased [Recovered/Resolved]
  - Respiratory arrest [Recovering/Resolving]
  - Heart rate decreased [Unknown]
